FAERS Safety Report 5959648-5 (Version None)
Quarter: 2008Q4

REPORT INFORMATION
  Report Type: 
  Country: None (occurrence: None)
  Receive Date: 20081120
  Receipt Date: 20081113
  Transmission Date: 20090506
  Serious: Yes (Hospitalization)
  Sender: FDA-Public Use
  Company Number: US-ELI_LILLY_AND_COMPANY-US200811003373

PATIENT
  Sex: Female

DRUGS (2)
  1. HUMALOG [Suspect]
     Indication: DIABETES MELLITUS
     Dosage: 20 U, UNK
     Dates: start: 20070101
  2. HUMALOG [Suspect]
     Dosage: 20 U, UNK
     Dates: start: 20070101

REACTIONS (2)
  - ASTHENIA [None]
  - SUBCUTANEOUS ABSCESS [None]
